FAERS Safety Report 8547976-9 (Version None)
Quarter: 2012Q3

REPORT INFORMATION
  Report Type: 
  Country: None (occurrence: None)
  Receive Date: 20120729
  Receipt Date: 20120717
  Transmission Date: 20120928
  Serious: Yes (Other)
  Sender: FDA-Public Use
  Company Number: US-009507513-1111USA02501

PATIENT

DRUGS (4)
  1. ACTONEL [Suspect]
     Indication: OSTEOPOROSIS
  2. FOSAMAX [Suspect]
     Indication: OSTEOPENIA
     Dosage: 70 MG, QW
     Route: 048
     Dates: start: 20051024, end: 20070109
  3. FOSAMAX [Suspect]
     Indication: OSTEOPOROSIS
  4. ACTONEL [Suspect]
     Indication: OSTEOPENIA
     Dosage: 35 MG, QW
     Dates: start: 20070109, end: 20100101

REACTIONS (23)
  - ORAL DISORDER [None]
  - SCOLIOSIS [None]
  - DENTAL CARIES [None]
  - HYPERTENSION [None]
  - ACTINOMYCES TEST POSITIVE [None]
  - TINEA PEDIS [None]
  - EXOSTOSIS [None]
  - TOOTH DISORDER [None]
  - ARTHRITIS [None]
  - ACUTE SINUSITIS [None]
  - ABSCESS [None]
  - BREAST DISORDER [None]
  - INGUINAL HERNIA [None]
  - ORAL INFECTION [None]
  - BREAST CYST [None]
  - OSTEOARTHRITIS [None]
  - OSTEOMYELITIS [None]
  - OSTEONECROSIS OF JAW [None]
  - ARTHROPATHY [None]
  - IMPAIRED HEALING [None]
  - ACTINOMYCOSIS [None]
  - PALPITATIONS [None]
  - TOOTH FRACTURE [None]
